FAERS Safety Report 4502318-0 (Version None)
Quarter: 2004Q4

REPORT INFORMATION
  Report Type: 
  Country: None (occurrence: None)
  Receive Date: 20041116
  Receipt Date: 20040927
  Transmission Date: 20050328
  Serious: Yes (Life-Threatening)
  Sender: FDA-Public Use
  Company Number: JP-GLAXOSMITHKLINE-B0346599A

PATIENT
  Age: 3 Year
  Sex: Female
  Weight: 13 kg

DRUGS (21)
  1. ALKERAN [Suspect]
     Indication: NEUROBLASTOMA
     Route: 042
     Dates: start: 20020301, end: 20020302
  2. ETOPOSIDE [Suspect]
     Indication: BONE MARROW CONDITIONING REGIMEN
     Dosage: 60MG PER DAY
     Route: 042
     Dates: start: 20020227, end: 20020303
  3. PARAPLATIN [Suspect]
     Indication: BONE MARROW CONDITIONING REGIMEN
     Dosage: 170MG PER DAY
     Route: 042
     Dates: start: 20020227, end: 20020303
  4. GRAN [Concomitant]
  5. KYTRIL [Concomitant]
  6. ZOVIRAX [Concomitant]
  7. FIRSTCIN [Concomitant]
  8. DIFLUCAN [Concomitant]
  9. LASIX [Concomitant]
  10. SOLDACTONE [Concomitant]
  11. GASTER [Concomitant]
  12. CARBENIN [Concomitant]
  13. SOLU-CORTEF [Concomitant]
  14. INOVAN [Concomitant]
  15. CARPERITIDE [Concomitant]
  16. MIRACLID [Concomitant]
  17. MIDAZOLAM HCL [Concomitant]
  18. FUNGIZONE [Concomitant]
  19. BACCIDAL [Concomitant]
  20. PIRARUBICIN [Concomitant]
     Route: 042
     Dates: start: 20010902
  21. CYCLOPHOSPHAMIDE [Concomitant]
     Route: 042
     Dates: start: 20010831

REACTIONS (8)
  - C-REACTIVE PROTEIN INCREASED [None]
  - CARDIO-RESPIRATORY ARREST [None]
  - DYSPNOEA [None]
  - LIVER DISORDER [None]
  - PYREXIA [None]
  - RENAL FAILURE [None]
  - RESPIRATORY FAILURE [None]
  - SEPSIS [None]
